FAERS Safety Report 7375048-8 (Version None)
Quarter: 2011Q1

REPORT INFORMATION
  Report Type: 
  Country: None (occurrence: None)
  Receive Date: 20110317
  Receipt Date: 20110301
  Transmission Date: 20110831
  Serious: Yes (Death, Hospitalization)
  Sender: FDA-Public Use
  Company Number: WAES 1103USA00468

PATIENT
  Age: 32 Year
  Sex: Male

DRUGS (6)
  1. DEXTROSE (+) ELECTROLYTES [Concomitant]
  2. ACETAMINOPHEN [Concomitant]
  3. CIPROFLOXACIN [Concomitant]
  4. IBUPROFEN [Concomitant]
  5. TAB RALTEGRAVIR POTASSIUM [Suspect]
     Indication: HIV INFECTION
     Dates: start: 20110111, end: 20110210
  6. ALUVIA (LOPINAVIR + RITONAVIR) [Suspect]
     Indication: HIV INFECTION
     Dates: start: 20110111, end: 20110210

REACTIONS (11)
  - DEHYDRATION [None]
  - STOMATITIS [None]
  - PALLOR [None]
  - SEPSIS [None]
  - BRONCHOPNEUMONIA [None]
  - LYMPHOCYTOSIS [None]
  - PRODUCTIVE COUGH [None]
  - MALAISE [None]
  - HEPATITIS [None]
  - PANCYTOPENIA [None]
  - SHOCK [None]
